FAERS Safety Report 11002909 (Version 1)
Quarter: 2015Q2

REPORT INFORMATION
  Report Type: Spontaneous
  Country: US (occurrence: US)
  Receive Date: 20150408
  Receipt Date: 20150408
  Transmission Date: 20150821
  Serious: No
  Sender: FDA-Public Use
  Company Number: US-ELI_LILLY_AND_COMPANY-US201503004768

PATIENT
  Sex: Male

DRUGS (3)
  1. FINASTERIDE. [Concomitant]
     Active Substance: FINASTERIDE
     Dosage: 5 MG, UNK
  2. TAMSULOSIN [Concomitant]
     Active Substance: TAMSULOSIN
     Dosage: 4 MG, UNK
  3. CIALIS [Suspect]
     Active Substance: TADALAFIL
     Indication: ERECTILE DYSFUNCTION
     Dosage: 2.5 MG, PRN
     Route: 065
     Dates: start: 201411

REACTIONS (4)
  - Drug ineffective [Unknown]
  - Spontaneous penile erection [Unknown]
  - Drug effect delayed [Unknown]
  - Intentional product misuse [Unknown]
